FAERS Safety Report 7259578-5 (Version None)
Quarter: 2011Q1

REPORT INFORMATION
  Report Type: 
  Country: None (occurrence: None)
  Receive Date: 20110130
  Receipt Date: 20100902
  Transmission Date: 20110831
  Serious: No
  Sender: FDA-Public Use
  Company Number: PR-ABBOTT-10P-131-0668130-00

PATIENT
  Sex: Female

DRUGS (8)
  1. TEMAZEPAM [Concomitant]
     Indication: SLEEP DISORDER THERAPY
     Route: 048
  2. BENTYL [Concomitant]
     Indication: ABDOMINAL PAIN UPPER
  3. IMURAN [Concomitant]
     Indication: CROHN'S DISEASE
  4. ALBUTEROL [Concomitant]
     Indication: ASTHMA
     Dates: end: 20091201
  5. HUMIRA [Suspect]
     Indication: CROHN'S DISEASE
     Dosage: FOUR PENS AT FIRST DOSE
     Route: 058
  6. SINGULAIR [Concomitant]
     Indication: ASTHMA
     Dates: end: 20091201
  7. BENTYL [Concomitant]
  8. LEXAPRO [Concomitant]
     Indication: DEPRESSION
     Route: 048

REACTIONS (5)
  - PAIN [None]
  - DEPRESSION [None]
  - ABDOMINAL PAIN UPPER [None]
  - GASTROINTESTINAL PAIN [None]
  - ABDOMINAL DISTENSION [None]
